FAERS Safety Report 23439480 (Version 4)
Quarter: 2024Q2

REPORT INFORMATION
  Report Type: Spontaneous
  Country: US (occurrence: US)
  Receive Date: 20240124
  Receipt Date: 20240514
  Transmission Date: 20240715
  Serious: Yes (Other)
  Sender: FDA-Public Use
  Company Number: US-KARYOPHARM-2023KPT001907

PATIENT

DRUGS (29)
  1. XPOVIO [Suspect]
     Active Substance: SELINEXOR
     Indication: Plasma cell myeloma
     Dosage: 80 MG, WEEKLY
     Route: 048
     Dates: start: 20230907
  2. XPOVIO [Suspect]
     Active Substance: SELINEXOR
     Dosage: 60 MG, D 1,8, 15+22
     Route: 048
     Dates: start: 202312, end: 202312
  3. XPOVIO [Suspect]
     Active Substance: SELINEXOR
     Dosage: 60 MG, D 1,8, 15+22
     Route: 048
     Dates: start: 202312, end: 202405
  4. IPRATROPIUM BROMIDE [Concomitant]
     Active Substance: IPRATROPIUM BROMIDE\IPRATROPIUM BROMIDE ANHYDROUS
  5. METFORMIN [Concomitant]
     Active Substance: METFORMIN HYDROCHLORIDE
  6. MINOCYCLINE [Concomitant]
     Active Substance: MINOCYCLINE HYDROCHLORIDE
  7. MUPIROCIN [Concomitant]
     Active Substance: MUPIROCIN
  8. ONDANSETRON [Concomitant]
     Active Substance: ONDANSETRON
  9. OXYCODONE [Concomitant]
     Active Substance: OXYCODONE\OXYCODONE HYDROCHLORIDE
  10. SULFAMETHOXAZOLE AND TRIMETHOPRIM [Concomitant]
     Active Substance: SULFAMETHOXAZOLE\TRIMETHOPRIM
  11. ACYCLOVIR [Concomitant]
     Active Substance: ACYCLOVIR
  12. CLOBETASOL PROPIONATE [Concomitant]
     Active Substance: CLOBETASOL PROPIONATE
  13. CYCLOBENZAPRINE HYDROCHLORIDE [Concomitant]
     Active Substance: CYCLOBENZAPRINE HYDROCHLORIDE
  14. DEXAMETHASONE [Concomitant]
     Active Substance: DEXAMETHASONE
  15. ELIQUIS [Concomitant]
     Active Substance: APIXABAN
  16. FAMOTIDINE [Concomitant]
     Active Substance: FAMOTIDINE
  17. FUROSEMIDE [Concomitant]
     Active Substance: FUROSEMIDE
  18. MICADERM [Concomitant]
  19. OMEPRAZOLE [Concomitant]
     Active Substance: DONEPEZIL HYDROCHLORIDE\OMEPRAZOLE\OMEPRAZOLE MAGNESIUM
  20. IBUPROFEN [Concomitant]
     Active Substance: IBUPROFEN
  21. OXYCODONE AND ACETAMINOPHEN [Concomitant]
     Active Substance: ACETAMINOPHEN\OXYCODONE HYDROCHLORIDE
  22. PHENERGAN [Concomitant]
     Active Substance: PROMETHAZINE HYDROCHLORIDE
  23. TERBINAFINE HYDROCHLORIDE [Concomitant]
     Active Substance: TERBINAFINE HYDROCHLORIDE
  24. URSODIOL [Concomitant]
     Active Substance: URSODIOL
  25. AZITHROMYCIN [Concomitant]
     Active Substance: AZITHROMYCIN
  26. KEFLEX [Concomitant]
     Active Substance: CEPHALEXIN
  27. ALBUTEROL [Concomitant]
     Active Substance: ALBUTEROL
  28. ATROPINE\DIPHENOXYLATE [Concomitant]
     Active Substance: ATROPINE\DIPHENOXYLATE
  29. LOPERAMIDE HYDROCHLORIDE [Concomitant]
     Active Substance: LOPERAMIDE HYDROCHLORIDE

REACTIONS (14)
  - Thrombosis [Unknown]
  - Nasopharyngitis [Unknown]
  - Headache [Unknown]
  - Influenza [Unknown]
  - Dysgeusia [Unknown]
  - Gastrooesophageal reflux disease [Unknown]
  - Plasma cell myeloma [Unknown]
  - Vomiting [Unknown]
  - Nausea [Not Recovered/Not Resolved]
  - Fatigue [Unknown]
  - Decreased appetite [Not Recovered/Not Resolved]
  - Diarrhoea [Not Recovered/Not Resolved]
  - Abdominal pain [Unknown]
  - Product dose omission issue [Unknown]

NARRATIVE: CASE EVENT DATE: 20230101
